FAERS Safety Report 8596062 (Version 2)
Quarter: 2013Q2

REPORT INFORMATION
  Report Type: Spontaneous
  Country: US (occurrence: US)
  Receive Date: 20120605
  Receipt Date: 20130617
  Transmission Date: 20140414
  Serious: Yes (Other)
  Sender: FDA-Public Use
  Company Number: US-ASTRAZENECA-2012SE35052

PATIENT
  Age: 59 Year
  Sex: Female
  Weight: 102.1 kg

DRUGS (15)
  1. NEXIUM [Suspect]
     Indication: GASTRIC DISORDER
     Route: 048
     Dates: start: 20080225
  2. NEXIUM [Suspect]
     Indication: GASTRIC DISORDER
     Dosage: ONCE A DAY
     Route: 048
     Dates: start: 2009
  3. DOXEPIN HCL [Concomitant]
  4. AMLOD/BENAZEPRIL [Concomitant]
     Dosage: 5-20 MG AT BEDTIME
     Dates: start: 20080228
  5. LEVOTHYROXINE [Concomitant]
  6. LEVOTHYROXINE [Concomitant]
     Dates: start: 20080131
  7. CARBE/LEVO [Concomitant]
     Dosage: 25-100 MG TAB
     Dates: start: 20080131
  8. DETROL LA [Concomitant]
     Dates: start: 20080131
  9. LORATADINE [Concomitant]
     Dates: start: 20080131
  10. PRILOSEC [Concomitant]
     Dates: start: 20080131
  11. RANITIDINE [Concomitant]
     Dates: start: 20080131
  12. RISPERDAL [Concomitant]
     Dates: start: 20080131
  13. SERTRALINE [Concomitant]
     Dates: start: 20080131
  14. SINGULAIR [Concomitant]
     Dates: start: 20080131
  15. TRAZODONE [Concomitant]
     Dates: start: 20080131

REACTIONS (13)
  - Convulsion [Unknown]
  - Spinal fracture [Unknown]
  - Osteoporosis [Unknown]
  - Wrist fracture [Unknown]
  - Lower limb fracture [Unknown]
  - Arthritis [Unknown]
  - Multiple fractures [Unknown]
  - Ankle fracture [Unknown]
  - Lower limb fracture [Unknown]
  - Vitamin D deficiency [Unknown]
  - Fracture [Unknown]
  - Depression [Unknown]
  - Diabetes mellitus [Unknown]
